FAERS Safety Report 4826834-7 (Version None)
Quarter: 2005Q4

REPORT INFORMATION
  Report Type: 
  Country: None (occurrence: None)
  Receive Date: 20051014
  Receipt Date: 20050705
  Transmission Date: 20060501
  Serious: No
  Sender: FDA-Public Use
  Company Number: 2005SP001718

PATIENT
  Age: 55 Year
  Sex: Male
  Weight: 99.7913 kg

DRUGS (10)
  1. LUNESTA [Suspect]
     Dosage: 3 MG;HS;ORAL ; 2 MG;HS;ORAL
     Route: 048
     Dates: start: 20050501, end: 20050101
  2. LUNESTA [Suspect]
     Dosage: 3 MG;HS;ORAL ; 2 MG;HS;ORAL
     Route: 048
     Dates: start: 20050620, end: 20050101
  3. ATORVASTATIN CALCIUM [Concomitant]
  4. LORATADINE [Concomitant]
  5. NASAREL [Concomitant]
  6. LORTAB [Concomitant]
  7. ^DEZASOXACIN^ [Concomitant]
  8. LEXAPRO [Concomitant]
  9. PANTOPRAZOLE [Concomitant]
  10. ASPIRIN [Concomitant]

REACTIONS (2)
  - FATIGUE [None]
  - SOMNOLENCE [None]
